FAERS Safety Report 5523757-5 (Version None)
Quarter: 2007Q4

REPORT INFORMATION
  Report Type: 
  Country: None (occurrence: None)
  Receive Date: 20071121
  Receipt Date: 20071120
  Transmission Date: 20080405
  Serious: Yes (Death)
  Sender: FDA-Public Use
  Company Number: GB-BRISTOL-MYERS SQUIBB COMPANY-13988928

PATIENT
  Sex: Male

DRUGS (4)
  1. HYDREA [Suspect]
  2. GLEEVEC [Concomitant]
  3. DASATINIB [Concomitant]
  4. NILOTINIB [Concomitant]

REACTIONS (5)
  - CHRONIC MYELOID LEUKAEMIA [None]
  - DYSPNOEA [None]
  - NON-SMALL CELL LUNG CANCER [None]
  - PERICARDIAL EFFUSION [None]
  - TACHYCARDIA [None]
